FAERS Safety Report 17551736 (Version 17)
Quarter: 2022Q4

REPORT INFORMATION
  Report Type: Report from Study
  Country: CA (occurrence: CA)
  Receive Date: 20200317
  Receipt Date: 20221223
  Transmission Date: 20230113
  Serious: Yes (Hospitalization, Other)
  Sender: FDA-Public Use
  Company Number: PHHY2017CA043518

PATIENT
  Age: 47 Year
  Sex: Female

DRUGS (4)
  1. SANDOSTATIN LAR DEPOT [Suspect]
     Active Substance: OCTREOTIDE ACETATE
     Indication: Acromegaly
     Dosage: 30 MG, Q4W (EVERY 4 WEEKS)
     Route: 030
     Dates: start: 20110101
  2. SANDOSTATIN LAR DEPOT [Suspect]
     Active Substance: OCTREOTIDE ACETATE
  3. SANDOSTATIN LAR DEPOT [Suspect]
     Active Substance: OCTREOTIDE ACETATE
  4. CORTISONE [Suspect]
     Active Substance: CORTISONE
     Indication: Product used for unknown indication
     Dosage: UNK
     Route: 030

REACTIONS (31)
  - Pain [Unknown]
  - Gait disturbance [Unknown]
  - Renal failure [Unknown]
  - Pyrexia [Unknown]
  - Fatigue [Unknown]
  - Cerebrovascular accident [Unknown]
  - Adrenal insufficiency [Unknown]
  - Pneumonia [Unknown]
  - Hyperthyroidism [Unknown]
  - Sputum discoloured [Unknown]
  - Cough [Unknown]
  - Dyspnoea [Unknown]
  - Blood pressure increased [Unknown]
  - Urinary tract infection [Unknown]
  - Inflammatory pain [Unknown]
  - Gait inability [Unknown]
  - Mobility decreased [Unknown]
  - Nerve injury [Unknown]
  - Crying [Unknown]
  - Pelvic pain [Unknown]
  - Electric shock sensation [Unknown]
  - Infection [Unknown]
  - Malaise [Unknown]
  - Syringe issue [Unknown]
  - Underdose [Unknown]
  - Injection site haemorrhage [Unknown]
  - Injection site swelling [Unknown]
  - Injection site warmth [Unknown]
  - Injection site induration [Unknown]
  - Injection site erythema [Unknown]
  - Injection site pain [Unknown]

NARRATIVE: CASE EVENT DATE: 20170320
